FAERS Safety Report 10436776 (Version 2)
Quarter: 2014Q3

REPORT INFORMATION
  Report Type: Spontaneous
  Country: US (occurrence: US)
  Receive Date: 20140908
  Receipt Date: 20140908
  Transmission Date: 20150326
  Serious: No
  Sender: FDA-Public Use
  Company Number: US-BRISTOL-MYERS SQUIBB COMPANY-19538321

PATIENT
  Age: 21 Year
  Sex: Female
  Weight: 56.69 kg

DRUGS (3)
  1. ABILIFY [Suspect]
     Active Substance: ARIPIPRAZOLE
     Indication: CONFUSIONAL STATE
     Dosage: DOSE INCREASED TO 4MG AND THEN TO 10 MG IN JUN13
     Dates: start: 201302, end: 201312
  2. ABILIFY [Suspect]
     Active Substance: ARIPIPRAZOLE
     Indication: MENTAL DISORDER
     Dosage: DOSE INCREASED TO 4MG AND THEN TO 10 MG IN JUN13
     Dates: start: 201302, end: 201312
  3. ABILIFY [Suspect]
     Active Substance: ARIPIPRAZOLE
     Indication: STRESS
     Dosage: DOSE INCREASED TO 4MG AND THEN TO 10 MG IN JUN13
     Dates: start: 201302, end: 201312

REACTIONS (4)
  - Masked facies [Recovered/Resolved]
  - Musculoskeletal stiffness [Recovered/Resolved]
  - Weight increased [Recovered/Resolved]
  - Electroencephalogram abnormal [Unknown]
